FAERS Safety Report 13082285 (Version 1)
Quarter: 2017Q1

REPORT INFORMATION
  Report Type: Report from Study
  Country: US (occurrence: US)
  Receive Date: 20170103
  Receipt Date: 20170103
  Transmission Date: 20170428
  Serious: Yes (Death)
  Sender: FDA-Public Use
  Company Number: US-PFIZER INC-2016605725

PATIENT

DRUGS (4)
  1. THALIDOMIDE [Suspect]
     Active Substance: THALIDOMIDE
     Indication: GLIOMA
     Dosage: 100 MG, DAILY
  2. THALIDOMIDE [Suspect]
     Active Substance: THALIDOMIDE
     Dosage: 400 MG, DAILY (ESCALATED WEEKLY UP TO 400 MG DAILY)
  3. IRINOTECAN HCL [Suspect]
     Active Substance: IRINOTECAN HYDROCHLORIDE
     Indication: GLIOMA
     Dosage: 125 MG/M2, WEEKLY (FOR 4 WEEKS FOLLOWED BY 2 WEEKS REST)
  4. WARFARIN [Concomitant]
     Active Substance: WARFARIN
     Indication: THROMBOSIS PROPHYLAXIS
     Dosage: 1 MG, UNK

REACTIONS (1)
  - Death [Fatal]
